FAERS Safety Report 9657394 (Version 2)
Quarter: 2013Q4

REPORT INFORMATION
  Report Type: Spontaneous
  Country: US (occurrence: US)
  Receive Date: 20131030
  Receipt Date: 20131114
  Transmission Date: 20140711
  Serious: Yes (Other)
  Sender: FDA-Public Use
  Company Number: US-SA-2013SA109851

PATIENT
  Age: 69 Year
  Sex: Female
  Weight: 52.61 kg

DRUGS (4)
  1. DEMEROL [Suspect]
     Indication: NECK PAIN
     Dosage: FORM: IV AND TABLET ON DIFFERENT OCCASIONS FOR DIFFERENT REASONS.
     Route: 065
     Dates: start: 1998
  2. DEMEROL [Suspect]
     Indication: MIGRAINE
     Dosage: FORM: IV AND TABLET ON DIFFERENT OCCASIONS FOR DIFFERENT REASONS.
     Route: 065
     Dates: start: 1998
  3. LEVOTHYROXINE [Concomitant]
  4. ESTROGEN NOS [Concomitant]

REACTIONS (10)
  - Parkinson^s disease [Recovering/Resolving]
  - Mobility decreased [Not Recovered/Not Resolved]
  - Gait disturbance [Not Recovered/Not Resolved]
  - Muscle spasms [Not Recovered/Not Resolved]
  - Peroneal nerve palsy [Not Recovered/Not Resolved]
  - Asthenia [Recovering/Resolving]
  - Paraesthesia [Recovering/Resolving]
  - Immobile [Recovering/Resolving]
  - Migraine [Recovered/Resolved]
  - Nausea [Recovered/Resolved]
